FAERS Safety Report 7739777-6 (Version None)
Quarter: 2011Q3

REPORT INFORMATION
  Report Type: 
  Country: None (occurrence: None)
  Receive Date: 20110906
  Receipt Date: 20110825
  Transmission Date: 20111222
  Serious: Yes (Hospitalization)
  Sender: FDA-Public Use
  Company Number: 1028449

PATIENT
  Age: 62 Year
  Sex: Male

DRUGS (10)
  1. KETOROLAC TROMETHAMINE [Suspect]
     Indication: PAIN
     Dosage: 60 MG
  2. OLANZAPINE [Concomitant]
  3. HYDROMORPHONE HCL [Suspect]
     Indication: PAIN
     Dosage: SEE IMAGE
     Route: 042
  4. CYCLOPHOSPHAMIDE [Concomitant]
  5. DEXAMETHASONE [Suspect]
     Indication: METASTASES TO BONE
     Dosage: 4 MG DAILY 10 MG 8 MG DAILY
  6. DEXAMETHASONE [Suspect]
     Indication: PAIN
     Dosage: 4 MG DAILY 10 MG 8 MG DAILY
  7. KETOCONAZOLE [Concomitant]
  8. LACTULOSE [Concomitant]
  9. SENNA /00142201/ [Concomitant]
  10. METOCLOPRAMIDE [Suspect]
     Indication: PALLIATIVE CARE
     Dosage: 40 MG

REACTIONS (10)
  - PLEURAL EFFUSION [None]
  - DELIRIUM [None]
  - OEDEMA PERIPHERAL [None]
  - PLATELET COUNT DECREASED [None]
  - METASTASES TO BONE [None]
  - BACK PAIN [None]
  - MUSCULAR WEAKNESS [None]
  - BLOOD MAGNESIUM DECREASED [None]
  - INADEQUATE ANALGESIA [None]
  - SEDATION [None]
